FAERS Safety Report 6351664-7 (Version None)
Quarter: 2009Q3

REPORT INFORMATION
  Report Type: 
  Country: None (occurrence: None)
  Receive Date: 20090912
  Receipt Date: 20090622
  Transmission Date: 20100115
  Serious: No
  Sender: FDA-Public Use
  Company Number: US-ABBOTT-07P-163-0421654-00

PATIENT
  Sex: Female
  Weight: 68.1 kg

DRUGS (11)
  1. HUMIRA [Suspect]
     Indication: CROHN'S DISEASE
     Route: 058
     Dates: start: 20071001, end: 20071001
  2. HUMIRA [Suspect]
     Route: 058
     Dates: start: 20071015, end: 20071015
  3. HUMIRA [Suspect]
     Route: 058
     Dates: start: 20071016
  4. PREDNISONE [Suspect]
     Indication: CROHN'S DISEASE
     Route: 048
  5. UNKNOWN MEDICATION [Concomitant]
     Indication: DRUG USE FOR UNKNOWN INDICATION
     Dosage: 8 PILLS
     Route: 048
  6. ESOMEPRAZOLE MAGNESIUM [Concomitant]
     Indication: DRUG USE FOR UNKNOWN INDICATION
     Route: 048
  7. METOPROLOL TARTRATE [Concomitant]
     Indication: CARDIOVASCULAR EVENT PROPHYLAXIS
  8. TYLENOL [Concomitant]
     Indication: HEADACHE
  9. PREDNISONE [Concomitant]
     Indication: DRUG USE FOR UNKNOWN INDICATION
  10. MESALAZINE [Concomitant]
     Indication: DRUG USE FOR UNKNOWN INDICATION
  11. VITAMINS [Concomitant]
     Indication: DRUG USE FOR UNKNOWN INDICATION

REACTIONS (10)
  - DYSPNOEA [None]
  - HEADACHE [None]
  - INCORRECT DOSE ADMINISTERED [None]
  - INJECTION SITE DISCOLOURATION [None]
  - INJECTION SITE PAIN [None]
  - OEDEMA PERIPHERAL [None]
  - PAIN [None]
  - RESPIRATORY TRACT CONGESTION [None]
  - SWELLING FACE [None]
  - WEIGHT INCREASED [None]
